FAERS Safety Report 18184680 (Version 1)
Quarter: 2020Q3

REPORT INFORMATION
  Report Type: Spontaneous
  Country: US (occurrence: US)
  Receive Date: 20200824
  Receipt Date: 20200824
  Transmission Date: 20201103
  Serious: No
  Sender: FDA-Public Use
  Company Number: US-SA-2020SA219949

PATIENT

DRUGS (1)
  1. DUPIXENT [Suspect]
     Active Substance: DUPILUMAB
     Dosage: 300 MG, QOW
     Route: 058

REACTIONS (8)
  - Rhinorrhoea [Unknown]
  - Upper-airway cough syndrome [Unknown]
  - Sinus pain [Unknown]
  - Nasal polyps [Unknown]
  - Sneezing [Unknown]
  - Condition aggravated [Unknown]
  - Cough [Unknown]
  - Paranasal sinus discomfort [Unknown]

NARRATIVE: CASE EVENT DATE: 202007
